FAERS Safety Report 8200270-8 (Version None)
Quarter: 2012Q1

REPORT INFORMATION
  Report Type: 
  Country: None (occurrence: None)
  Receive Date: 20120312
  Receipt Date: 20120308
  Transmission Date: 20120608
  Serious: Yes (Disabling, Other)
  Sender: FDA-Public Use
  Company Number: US-PFIZER INC-2012063179

PATIENT

DRUGS (1)
  1. LIPITOR [Suspect]
     Dosage: 40MG, 1 PO QD
     Route: 048

REACTIONS (2)
  - FOOT AMPUTATION [None]
  - IMPAIRED WORK ABILITY [None]
